FAERS Safety Report 7062625-7 (Version None)
Quarter: 2010Q4

REPORT INFORMATION
  Report Type: 
  Country: None (occurrence: None)
  Receive Date: 20101026
  Receipt Date: 20100506
  Transmission Date: 20110411
  Serious: Yes (Other)
  Sender: FDA-Public Use
  Company Number: US-PFIZER INC-2006147946

PATIENT
  Sex: Female
  Weight: 78.5 kg

DRUGS (5)
  1. LIPITOR [Suspect]
     Indication: CORONARY ARTERY BYPASS
     Dates: start: 20060101, end: 20061009
  2. LOPRESSOR [Concomitant]
     Dosage: 20 MG, 1X/DAY
     Dates: start: 20060419
  3. BENICAR [Concomitant]
     Dosage: 20 MG, 1X/DAY
  4. ACETYLSALICYLIC ACID [Concomitant]
  5. GLUCOSAMINE W/CHONDROITIN SULFATES [Concomitant]
     Dosage: 50MG/600MG

REACTIONS (5)
  - ARTHRITIS [None]
  - BONE PAIN [None]
  - CHONDROPATHY [None]
  - MUSCLE DISORDER [None]
  - MYALGIA [None]
